FAERS Safety Report 24135604 (Version 2)
Quarter: 2024Q3

REPORT INFORMATION
  Report Type: Spontaneous
  Country: GB (occurrence: GB)
  Receive Date: 20240725
  Receipt Date: 20240728
  Transmission Date: 20241017
  Serious: No
  Sender: CSL BEHRING
  Company Number: GB-BEH-2024176041

PATIENT

DRUGS (1)
  1. PRIVIGEN [Suspect]
     Active Substance: HUMAN IMMUNOGLOBULIN G
     Dosage: 100MG/ML SOLUTION FOR INFUSION
     Route: 042
     Dates: start: 20240709

REACTIONS (1)
  - Hepatitis B core antibody positive [Unknown]
